FAERS Safety Report 26177634 (Version 1)
Quarter: 2025Q4

REPORT INFORMATION
  Report Type: Report from Study
  Country: US (occurrence: US)
  Receive Date: 20251219
  Receipt Date: 20251219
  Transmission Date: 20260118
  Serious: Yes (Other)
  Sender: ALEXION PHARMACEUTICALS
  Company Number: US-ASTRAZENECA-202512NAM015070US

PATIENT
  Sex: Female

DRUGS (1)
  1. ANIFROLUMAB [Suspect]
     Active Substance: ANIFROLUMAB
     Indication: Systemic lupus erythematosus
     Dosage: 300 MILLIGRAM, EVERY 28 DAYS

REACTIONS (14)
  - Skin weeping [Unknown]
  - Fatigue [Unknown]
  - Pain in extremity [Unknown]
  - Chest pain [Unknown]
  - Back pain [Unknown]
  - Stomatitis [Unknown]
  - Dysgeusia [Unknown]
  - Cough [Unknown]
  - Pruritus [Unknown]
  - Hyperhidrosis [Unknown]
  - Dry mouth [Unknown]
  - Oral discomfort [Unknown]
  - Anorectal polyp [Unknown]
  - Haemorrhoids [Unknown]
